FAERS Safety Report 17121517 (Version 1)
Quarter: 2019Q4

REPORT INFORMATION
  Report Type: Spontaneous
  Country: US (occurrence: US)
  Receive Date: 20191205
  Receipt Date: 20191205
  Transmission Date: 20200122
  Serious: Yes (Hospitalization)
  Sender: FDA-Public Use
  Company Number: None

PATIENT
  Age: 66 Year
  Sex: Male

DRUGS (12)
  1. SILDENAFIL. [Suspect]
     Active Substance: SILDENAFIL
     Indication: PULMONARY HYPERTENSION
     Route: 048
     Dates: start: 20180115
  2. ESCITALOPRAM [Concomitant]
     Active Substance: ESCITALOPRAM OXALATE
  3. LEVOTHYROXIN [Concomitant]
     Active Substance: LEVOTHYROXINE
  4. HYDROXYZ HCL [Concomitant]
     Active Substance: HYDROXYZINE HYDROCHLORIDE
  5. LEVOCETIRIZI [Concomitant]
  6. ENOXAPARIN [Concomitant]
     Active Substance: ENOXAPARIN
  7. PREDNISONE. [Concomitant]
     Active Substance: PREDNISONE
  8. METRONIDAZOL [Concomitant]
     Active Substance: METRONIDAZOLE
  9. METOPROL TAR [Concomitant]
  10. PANTOPRAZOLE [Concomitant]
     Active Substance: PANTOPRAZOLE
  11. FEXOFENADINE [Concomitant]
     Active Substance: FEXOFENADINE HYDROCHLORIDE
  12. PROBENECID. [Concomitant]
     Active Substance: PROBENECID

REACTIONS (5)
  - Gastrointestinal haemorrhage [None]
  - Skin exfoliation [None]
  - Dry skin [None]
  - Urticaria [None]
  - Fall [None]

NARRATIVE: CASE EVENT DATE: 20191031
